FAERS Safety Report 6533642-8 (Version None)
Quarter: 2010Q1

REPORT INFORMATION
  Report Type: 
  Country: None (occurrence: None)
  Receive Date: 20100108
  Receipt Date: 20100108
  Transmission Date: 20100710
  Serious: No
  Sender: FDA-Public Use
  Company Number: None

PATIENT
  Age: 59 Year
  Sex: Female
  Weight: 61.2356 kg

DRUGS (1)
  1. METOCLOPRAMIDE [Suspect]
     Indication: GASTROINTESTINAL DISORDER
     Dosage: 1 TO 2 TABLETS 4 TIMES DAILY PO
     Route: 048
     Dates: start: 20070101, end: 20090705

REACTIONS (1)
  - PARKINSON'S DISEASE [None]
